FAERS Safety Report 6062560-7 (Version None)
Quarter: 2009Q1

REPORT INFORMATION
  Report Type: 
  Country: None (occurrence: None)
  Receive Date: 20090203
  Receipt Date: 20090129
  Transmission Date: 20090719
  Serious: Yes (Other)
  Sender: FDA-Public Use
  Company Number: US-ALLERGAN-0816530US

PATIENT
  Sex: Male
  Weight: 32.653 kg

DRUGS (4)
  1. BOTOX [Suspect]
     Indication: MUSCLE SPASTICITY
     Dosage: 400 UNITS, SINGLE
     Route: 030
     Dates: start: 20081222, end: 20081222
  2. BOTOX [Suspect]
     Indication: GAIT DISTURBANCE
     Dosage: UNK, SINGLE
     Route: 030
     Dates: start: 20050823, end: 20050823
  3. BOTOX [Suspect]
     Dosage: UNK, SINGLE
     Route: 030
     Dates: start: 20051220, end: 20051220
  4. BOTOX [Suspect]
     Dosage: UNK, SINGLE
     Route: 030
     Dates: start: 20060526, end: 20060526

REACTIONS (2)
  - ASTHENIA [None]
  - MUSCULAR WEAKNESS [None]
